FAERS Safety Report 4656646-9 (Version None)
Quarter: 2005Q2

REPORT INFORMATION
  Report Type: 
  Country: None (occurrence: None)
  Receive Date: 20050331
  Receipt Date: 20040909
  Transmission Date: 20051028
  Serious: No
  Sender: FDA-Public Use
  Company Number: US090644

PATIENT
  Age: 33 Year
  Sex: Female
  Weight: 51 kg

DRUGS (7)
  1. NEULASTA [Suspect]
     Indication: CHEMOTHERAPY
     Dosage: 6 MG, 1 IN 2 WEEKS, SC
     Route: 058
     Dates: start: 20040624
  2. DOXORUBICIN HYDROCHLORIDE [Concomitant]
  3. CYCLOPHOSPHAMIDE [Concomitant]
  4. GRANISETRON [Concomitant]
  5. DEXAMETHASONE [Concomitant]
  6. MESCOLOR [Concomitant]
  7. PROCHLORPERAZINE [Concomitant]

REACTIONS (1)
  - NEUTROPENIA [None]
